FAERS Safety Report 24189427 (Version 2)
Quarter: 2024Q3

REPORT INFORMATION
  Report Type: Spontaneous
  Country: GB (occurrence: GB)
  Receive Date: 20240808
  Receipt Date: 20240919
  Transmission Date: 20241016
  Serious: Yes (Hospitalization)
  Sender: MYLAN
  Company Number: GB-MYLANLABS-2023M1110500

PATIENT
  Age: 74 Year
  Sex: Male

DRUGS (2)
  1. CLOZARIL [Suspect]
     Active Substance: CLOZAPINE
     Indication: Schizophrenia
     Dosage: UNK
     Route: 048
     Dates: start: 20111221, end: 20240727
  2. CLOZARIL [Suspect]
     Active Substance: CLOZAPINE
     Dosage: UNK (RESTARTED ON CLOZAPINE)
     Route: 048

REACTIONS (5)
  - Influenza [Unknown]
  - Pneumonia [Unknown]
  - Eosinophilia [Unknown]
  - Differential white blood cell count abnormal [Unknown]
  - Therapy cessation [Recovered/Resolved]

NARRATIVE: CASE EVENT DATE: 20231009
